FAERS Safety Report 14424073 (Version 1)
Quarter: 2018Q1

REPORT INFORMATION
  Report Type: Spontaneous
  Country: US (occurrence: US)
  Receive Date: 20180123
  Receipt Date: 20180123
  Transmission Date: 20180509
  Serious: Yes (Hospitalization)
  Sender: FDA-Public Use
  Company Number: PHHY2018US009460

PATIENT
  Age: 5 Year
  Sex: Male

DRUGS (3)
  1. AMIODARONE [Suspect]
     Active Substance: AMIODARONE
     Indication: SUPRAVENTRICULAR TACHYCARDIA
     Route: 065
  2. ESMOLOL [Suspect]
     Active Substance: ESMOLOL HYDROCHLORIDE
     Indication: SUPRAVENTRICULAR TACHYCARDIA
     Route: 041
  3. FLECAINIDE [Suspect]
     Active Substance: FLECAINIDE
     Indication: SUPRAVENTRICULAR TACHYCARDIA
     Route: 065

REACTIONS (3)
  - Pulseless electrical activity [Unknown]
  - Supraventricular tachycardia [Unknown]
  - Cardiac arrest [Recovered/Resolved]
